FAERS Safety Report 7640749-0 (Version None)
Quarter: 2011Q3

REPORT INFORMATION
  Report Type: 
  Country: None (occurrence: None)
  Receive Date: 20110728
  Receipt Date: 20110715
  Transmission Date: 20111222
  Serious: Yes (Other)
  Sender: FDA-Public Use
  Company Number: US-ELI_LILLY_AND_COMPANY-US201107005757

PATIENT
  Age: 65 Year
  Sex: Female

DRUGS (1)
  1. FORTEO [Suspect]
     Indication: STRESS FRACTURE
     Dosage: UNK
     Dates: start: 20070101

REACTIONS (4)
  - FEMUR FRACTURE [None]
  - MEDICATION ERROR [None]
  - BONE DENSITY DECREASED [None]
  - OFF LABEL USE [None]
